FAERS Safety Report 8817412 (Version 1)
Quarter: 2012Q4

REPORT INFORMATION
  Report Type: 
  Country: US (occurrence: US)
  Receive Date: 20121004
  Receipt Date: 20121004
  Transmission Date: 20130627
  Serious: No
  Sender: FDA-Public Use
  Company Number: US-009507513-1210USA000440

PATIENT
  Age: 74 Year
  Sex: Male

DRUGS (2)
  1. JANUVIA [Suspect]
     Dosage: 100 mg, qd
     Route: 048
  2. PROZAC [Concomitant]

REACTIONS (3)
  - Mood altered [Unknown]
  - Aggression [Unknown]
  - Impatience [Unknown]
